FAERS Safety Report 4611185-6 (Version None)
Quarter: 2005Q2

REPORT INFORMATION
  Report Type: 
  Country: None (occurrence: None)
  Receive Date: 20050314
  Receipt Date: 20040423
  Transmission Date: 20051028
  Serious: Yes (Hospitalization, Other)
  Sender: FDA-Public Use
  Company Number: USA040465732

PATIENT
  Age: 77 Year
  Sex: Male

DRUGS (8)
  1. GEMZAR [Suspect]
     Indication: BILE DUCT CANCER
     Dosage: 1000 MG/M2/1 WEEK
     Dates: start: 20031230
  2. DIOVAN [Concomitant]
  3. PRILOSEC [Concomitant]
  4. LASIX [Concomitant]
  5. TOPROL-XL [Concomitant]
  6. COMPAZINE [Concomitant]
  7. ASPIRIN [Concomitant]
  8. ATROVENT [Concomitant]

REACTIONS (5)
  - CARDIAC FAILURE [None]
  - HEADACHE [None]
  - PNEUMONITIS [None]
  - PULMONARY FIBROSIS [None]
  - PYREXIA [None]
